FAERS Safety Report 8348795 (Version 6)
Quarter: 2013Q2

REPORT INFORMATION
  Report Type: Report from Study
  Country: DE (occurrence: DE)
  Receive Date: 20120123
  Receipt Date: 20130517
  Transmission Date: 20140414
  Serious: Yes (Hospitalization)
  Sender: FDA-Public Use
  Company Number: PHHO2010DE12603

PATIENT
  Age: 56 Year
  Sex: Male
  Weight: 82 kg

DRUGS (11)
  1. BLINDED AFINITOR [Suspect]
     Indication: TUBEROUS SCLEROSIS
     Dosage: CODE NOT BROKEN
     Route: 048
     Dates: start: 20090810, end: 20120218
  2. BLINDED NO TREATMENT RECEIVED [Suspect]
     Indication: TUBEROUS SCLEROSIS
     Dosage: CODE NOT BROKEN
     Route: 048
     Dates: start: 20090810, end: 20120218
  3. BLINDED PLACEBO [Suspect]
     Indication: TUBEROUS SCLEROSIS
     Dosage: CODE NOT BROKEN
     Route: 048
     Dates: start: 20090810, end: 20120218
  4. BLINDED AFINITOR [Suspect]
     Dosage: CODE NOT BROKEN
     Route: 048
     Dates: start: 20120221
  5. BLINDED NO TREATMENT RECEIVED [Suspect]
     Dosage: CODE NOT BROKEN
     Route: 048
     Dates: start: 20120221
  6. BLINDED PLACEBO [Suspect]
     Dosage: CODE NOT BROKEN
     Route: 048
     Dates: start: 20120221
  7. CALCIUM [Concomitant]
  8. BLOPRESS [Concomitant]
  9. VIGANTOLETTEN [Concomitant]
  10. LOCOL [Concomitant]
     Indication: DIARRHOEA
     Dosage: UNK
     Dates: end: 20120116
  11. ALFUZOSIN HYDROCHLORIDE [Concomitant]

REACTIONS (9)
  - Gastrointestinal infection [Recovered/Resolved]
  - Pneumonia legionella [Recovered/Resolved]
  - Lung infiltration [Recovered/Resolved]
  - Pyrexia [Recovered/Resolved]
  - Diarrhoea [Recovered/Resolved]
  - Renal failure acute [Recovered/Resolved]
  - Urinary tract infection [Recovered/Resolved]
  - Cardiovascular insufficiency [Recovered/Resolved]
  - Hypovolaemia [Recovered/Resolved]
